FAERS Safety Report 8637371 (Version 4)
Quarter: 2013Q1

REPORT INFORMATION
  Report Type: Spontaneous
  Country: US (occurrence: US)
  Receive Date: 20120627
  Receipt Date: 20130114
  Transmission Date: 20140127
  Serious: Yes (Other)
  Sender: FDA-Public Use
  Company Number: US-BAYER-2012-062898

PATIENT
  Age: 50 Year
  Sex: Female
  Weight: 63 kg

DRUGS (4)
  1. BETASERON [Suspect]
     Indication: MULTIPLE SCLEROSIS
     Dosage: 0.3 MG, QOD
     Route: 058
     Dates: start: 200801
  2. BETASERON [Suspect]
     Indication: MULTIPLE SCLEROSIS
     Dosage: 0.3 MG, QOD
     Route: 058
     Dates: start: 20010509
  3. BETASERON [Suspect]
     Indication: MULTIPLE SCLEROSIS
     Dosage: HALF DOSE
     Dates: start: 2003
  4. MELATONIN [Concomitant]
     Indication: INSOMNIA
     Dosage: 3 MG, HS

REACTIONS (3)
  - Influenza like illness [Recovered/Resolved]
  - Injection site reaction [Recovering/Resolving]
  - Injection site necrosis [Recovering/Resolving]
